FAERS Safety Report 8937184 (Version 1)
Quarter: 2012Q4

REPORT INFORMATION
  Report Type: Spontaneous
  Country: US (occurrence: None)
  Receive Date: 20121128
  Receipt Date: 20121128
  Transmission Date: 20130627
  Serious: Yes (Hospitalization)
  Sender: FDA-Public Use
  Company Number: None

PATIENT
  Age: 62 Year
  Sex: Male
  Weight: 83.3 kg

DRUGS (15)
  1. BC [Suspect]
     Dosage: recent
     Route: 048
  2. MOTRIN [Suspect]
     Dosage: chronic
     Route: 048
  3. ASA [Suspect]
     Dosage: CHRONIC 

2 packets
     Route: 048
  4. SINIMET [Concomitant]
  5. VIT D3 [Concomitant]
  6. VIT B12 [Concomitant]
  7. GLUCOSAMINE [Concomitant]
  8. LEVITRA [Concomitant]
  9. KLONOPIN [Concomitant]
  10. HYDRALAZINE [Concomitant]
  11. REQUIP [Concomitant]
  12. MAXZIDE [Concomitant]
  13. FISH OIL [Concomitant]
  14. LOPRESSOR [Concomitant]
  15. GARLIC [Concomitant]

REACTIONS (8)
  - Chest pain [None]
  - Dyspnoea [None]
  - Anaemia [None]
  - Gastric ulcer [None]
  - Rectal polyp [None]
  - Haemorrhoids [None]
  - Diverticulum [None]
  - Upper gastrointestinal haemorrhage [None]
